FAERS Safety Report 23343359 (Version 1)
Quarter: 2023Q4

REPORT INFORMATION
  Report Type: Report from Study
  Country: US (occurrence: US)
  Receive Date: 20231227
  Receipt Date: 20231227
  Transmission Date: 20240110
  Serious: No
  Sender: FDA-Public Use
  Company Number: US-AstraZeneca-CH-00533496A

PATIENT

DRUGS (1)
  1. ULTOMIRIS [Suspect]
     Active Substance: RAVULIZUMAB-CWVZ
     Indication: Product used for unknown indication
     Dosage: UNK
     Route: 065

REACTIONS (8)
  - General physical health deterioration [Not Recovered/Not Resolved]
  - Diplopia [Unknown]
  - Feeling abnormal [Unknown]
  - Gait disturbance [Unknown]
  - Speech disorder [Unknown]
  - Intervertebral disc protrusion [Unknown]
  - Muscular weakness [Unknown]
  - Asthenia [Unknown]

NARRATIVE: CASE EVENT DATE: 20231220
